FAERS Safety Report 14700692 (Version 3)
Quarter: 2018Q2

REPORT INFORMATION
  Report Type: Spontaneous
  Country: US (occurrence: US)
  Receive Date: 20180330
  Receipt Date: 20180411
  Transmission Date: 20180711
  Serious: Yes (Hospitalization, Other)
  Sender: FDA-Public Use
  Company Number: US-PFIZER INC-2018130447

PATIENT
  Age: 20 Year
  Sex: Male

DRUGS (1)
  1. EPINEPHRINE. [Suspect]
     Active Substance: EPINEPHRINE
     Indication: NASAL SEPTAL OPERATION
     Dosage: UNK

REACTIONS (6)
  - Accidental overdose [Unknown]
  - Stress cardiomyopathy [Recovered/Resolved]
  - Hypoxia [Recovered/Resolved]
  - Tachycardia [Recovered/Resolved]
  - Hypertension [Recovered/Resolved]
  - Hypotension [Recovered/Resolved]
